FAERS Safety Report 23196143 (Version 1)
Quarter: 2023Q4

REPORT INFORMATION
  Report Type: Spontaneous
  Country: US (occurrence: None)
  Receive Date: 20231116
  Receipt Date: 20231116
  Transmission Date: 20240109
  Serious: Yes (Death)
  Sender: FDA-Public Use
  Company Number: None

PATIENT
  Age: 61 Year
  Sex: Male
  Weight: 78.6 kg

DRUGS (3)
  1. OBINUTUZUMAB [Suspect]
     Active Substance: OBINUTUZUMAB
     Indication: Chronic lymphocytic leukaemia
     Dosage: OTHER FREQUENCY : ONCE;?
     Route: 041
     Dates: start: 20231106, end: 20231106
  2. FUROSEMIDE [Concomitant]
     Active Substance: FUROSEMIDE
     Dates: start: 20231101
  3. VENETOCLAX [Concomitant]
     Active Substance: VENETOCLAX
     Dates: start: 20231030

REACTIONS (7)
  - Infusion related reaction [None]
  - Chills [None]
  - Chills [None]
  - Confusional state [None]
  - Tachycardia [None]
  - Tachypnoea [None]
  - Cardiac arrest [None]

NARRATIVE: CASE EVENT DATE: 20231106
